FAERS Safety Report 23945221 (Version 1)
Quarter: 2024Q2

REPORT INFORMATION
  Report Type: Spontaneous
  Country: FR (occurrence: FR)
  Receive Date: 20240606
  Receipt Date: 20240606
  Transmission Date: 20240716
  Serious: Yes (Hospitalization)
  Sender: FDA-Public Use
  Company Number: None

PATIENT
  Age: 34 Year
  Sex: Female
  Weight: 103 kg

DRUGS (6)
  1. ETOPOSIDE [Suspect]
     Active Substance: ETOPOSIDE
     Indication: Testicular neoplasm
     Dosage: 220 MILLIGRAM (ON DAYS 1 TO 5)
     Route: 042
     Dates: start: 20240219, end: 20240223
  2. CISPLATIN [Suspect]
     Active Substance: CISPLATIN
     Indication: Testicular neoplasm
     Dosage: 44 MILLIGRAM
     Route: 042
     Dates: start: 20240219, end: 20240223
  3. BLEOMYCIN SULFATE [Suspect]
     Active Substance: BLEOMYCIN SULFATE
     Indication: Testicular neoplasm
     Dosage: 30 MILLIGRAM (1 FP)
     Route: 042
     Dates: start: 20240219, end: 20240226
  4. APREPITANT [Concomitant]
     Active Substance: APREPITANT
     Indication: Nausea
     Dosage: 80 MILLIGRAM, QD
     Route: 048
     Dates: start: 20240219
  5. FILGRASTIM [Concomitant]
     Active Substance: FILGRASTIM
     Indication: Colony stimulating factor therapy
     Dosage: 48 INTERNATIONAL UNIT
     Route: 048
     Dates: start: 20240224
  6. PREDNISONE [Concomitant]
     Active Substance: PREDNISONE
     Indication: Product used for unknown indication
     Dosage: 60 MILLIGRAM, QD
     Route: 048
     Dates: start: 20240223

REACTIONS (1)
  - Myocardial infarction [Recovered/Resolved]

NARRATIVE: CASE EVENT DATE: 20240228
